FAERS Safety Report 10059288 (Version 1)
Quarter: 2014Q2

REPORT INFORMATION
  Report Type: Spontaneous
  Country: FR (occurrence: FR)
  Receive Date: 20140404
  Receipt Date: 20140404
  Transmission Date: 20141212
  Serious: Yes (Life-Threatening, Other)
  Sender: FDA-Public Use
  Company Number: FR-PFIZER INC-2014091194

PATIENT
  Age: 53 Year
  Sex: Female

DRUGS (8)
  1. LYRICA [Suspect]
     Indication: POISONING DELIBERATE
     Dosage: 150 MG, 2X/DAY
     Route: 048
  2. LYRICA [Suspect]
     Dosage: UNK
     Route: 048
     Dates: start: 20140321
  3. RIVOTRIL [Suspect]
     Dosage: UNK
     Route: 048
     Dates: start: 20140321
  4. LAROXYL [Suspect]
     Dosage: UNK
     Route: 048
     Dates: start: 20140321
  5. ATARAX [Suspect]
     Dosage: UNK
     Route: 048
     Dates: start: 20140321
  6. IXPRIM [Suspect]
     Dosage: 4 DF, AS NEEDED
     Route: 048
  7. IXPRIM [Suspect]
     Dosage: UNK
     Route: 048
     Dates: start: 20140321
  8. CYMBALTA [Concomitant]
     Dosage: 60 MG, DAILY

REACTIONS (6)
  - Suicide attempt [Unknown]
  - Poisoning deliberate [Unknown]
  - Coma [Recovering/Resolving]
  - Respiratory alkalosis [Unknown]
  - Rhabdomyolysis [Unknown]
  - Bundle branch block right [Unknown]
